FAERS Safety Report 24746347 (Version 1)
Quarter: 2024Q4

REPORT INFORMATION
  Report Type: Report from Study
  Country: CA (occurrence: CA)
  Receive Date: 20241218
  Receipt Date: 20241218
  Transmission Date: 20250115
  Serious: Yes (Death)
  Sender: Unknown Manufacturer
  Company Number: CA-MTPC-MTDA2024-0023731

PATIENT
  Sex: Male

DRUGS (11)
  1. RADICAVA ORS [Suspect]
     Active Substance: EDARAVONE
     Dosage: 10 DAYS OUT OF 14 ON, 14 DAYS OFF
     Route: 048
  2. RADICAVA ORS [Suspect]
     Active Substance: EDARAVONE
     Dosage: 10 DAYS OUT OF 14 ON, 14 DAYS OFF
     Route: 048
  3. RADICAVA ORS [Suspect]
     Active Substance: EDARAVONE
     Indication: Amyotrophic lateral sclerosis
     Dosage: UNK
     Route: 048
     Dates: start: 20230415
  4. RADICAVA ORS [Suspect]
     Active Substance: EDARAVONE
     Indication: Amyotrophic lateral sclerosis
     Dosage: UNK
     Route: 048
     Dates: start: 20230415
  5. SODIUM PHENYLBUTYRATE\TAURURSODIOL [Concomitant]
     Active Substance: SODIUM PHENYLBUTYRATE\TAURURSODIOL
     Indication: Product used for unknown indication
     Dosage: UNK
     Route: 048
     Dates: start: 202311
  6. METFORMIN [Concomitant]
     Active Substance: METFORMIN HYDROCHLORIDE
     Indication: Product used for unknown indication
     Dosage: UNK, QD
     Route: 048
  7. OZEMPIC [Concomitant]
     Active Substance: SEMAGLUTIDE
     Indication: Product used for unknown indication
     Dosage: UNK, 1/WEEK
     Route: 058
  8. RILUTEK [Concomitant]
     Active Substance: RILUZOLE
     Indication: Product used for unknown indication
     Dosage: UNK, QD
     Route: 048
     Dates: start: 20230124
  9. ROSUVASTATIN [Concomitant]
     Active Substance: ROSUVASTATIN
     Indication: Product used for unknown indication
     Dosage: UNK, QD
     Route: 048
  10. TELMISARTAN [Concomitant]
     Active Substance: TELMISARTAN
     Indication: Product used for unknown indication
     Dosage: UNK, QD
     Route: 048
  11. TRESIBA [Concomitant]
     Active Substance: INSULIN DEGLUDEC
     Indication: Product used for unknown indication
     Dosage: UNK, QD
     Route: 048

REACTIONS (3)
  - Death [Fatal]
  - Respiratory disorder [Unknown]
  - Malaise [Unknown]

NARRATIVE: CASE EVENT DATE: 20241202
